FAERS Safety Report 10020714 (Version 2)
Quarter: 2013Q4

REPORT INFORMATION
  Report Type: Spontaneous
  Country: JP (occurrence: None)
  Receive Date: 20131127
  Receipt Date: 20131209
  Transmission Date: 20140711
  Serious: Yes (Hospitalization)
  Sender: FDA-Public Use
  Company Number: SYM-2013-13239

PATIENT
  Age: 62 Year
  Sex: Male

DRUGS (17)
  1. FLUOROURACIL [Suspect]
     Indication: COLORECTAL CANCER METASTATIC
     Route: 040
     Dates: start: 20130925, end: 20130925
  2. IRINOTECAN [Suspect]
     Indication: COLORECTAL CANCER METASTATIC
     Dosage: 333.36 MG, EVERY OTHER WEEK, INTRAVENOUS (NOT OTHERWISE SPECIFIED)?
     Route: 042
     Dates: start: 20130925, end: 20130925
  3. LEUCOVORIN [Suspect]
     Dosage: INTRAVENOUS (NOT OTHERWISE SPECIFIED)
     Route: 042
     Dates: start: 20130925, end: 20130925
  4. AFLIBERCEPT [Suspect]
     Indication: COLORECTAL CANCER METASTATIC
     Dosage: INTRAVENOUS (NOT OTHERWISE SPECIFIED)
     Route: 042
     Dates: start: 20130925, end: 20130925
  5. LOXOPROFEN SODIUM HYDRATE (LOXOPROFEN SODIUM) (LOXOPROFEN SODIUM) [Concomitant]
  6. REBAMIPIDE (REBAPIMIDE) (REBAPIMIDE) [Concomitant]
  7. MAGNESIUM OXIE (MAGNEISUM OXIDE) (MAGNESUM OXIDE) [Concomitant]
  8. ZOPICLONE (ZOPICLONE) (ZOPICLONE) [Concomitant]
  9. TRAMAL (TRAMADOL HYDROCHLORIDE) (TRAMADOL HYDROCHLORIDE) [Concomitant]
  10. OXYCONTIN (OXYCODONE HYDROCHLORIDE) (OXYCODONE HYDROCHLORIDE) [Concomitant]
  11. OXYNORM (OXYCODONE HYDRCHLORIDE) (OXYCODONE HYDROCHLORIDE) [Concomitant]
  12. LYRICA (PREGABALIN) (PREGABALIN) [Concomitant]
  13. DEXALTIN / DEXAMETHASONE (DEXAMETHASONE) [Concomitant]
  14. SODIUM GUALENATE (SODIUM GUALENATE) (SODIUM GUALENATE) [Concomitant]
  15. LOXONIN (LOXOPROFEN SODIUM) (LOXOPROFEN SODIUM) [Concomitant]
  16. LANSOPRAZOLE (LANSOPRAZOLE) (LANSOPRAZOLE) [Concomitant]
  17. NOVAMIN (PROCHLORPERAZINE) (PROCHLORPERAZINE) [Concomitant]

REACTIONS (2)
  - Decreased appetite [None]
  - Hypophagia [None]
